FAERS Safety Report 7039530-5 (Version None)
Quarter: 2010Q4

REPORT INFORMATION
  Report Type: 
  Country: None (occurrence: None)
  Receive Date: 20101012
  Receipt Date: 20101011
  Transmission Date: 20110411
  Serious: Yes (Other)
  Sender: FDA-Public Use
  Company Number: A0885851A

PATIENT
  Age: 35 Year
  Sex: Male

DRUGS (2)
  1. NICORETTE [Suspect]
     Indication: SMOKING CESSATION THERAPY
     Route: 002
  2. NICOTINE POLACRILEX [Suspect]
     Indication: SMOKING CESSATION THERAPY
     Route: 002

REACTIONS (5)
  - DRUG TOXICITY [None]
  - FATIGUE [None]
  - INTENTIONAL DRUG MISUSE [None]
  - MALAISE [None]
  - NICOTINE DEPENDENCE [None]
